FAERS Safety Report 5286935-9 (Version None)
Quarter: 2007Q2

REPORT INFORMATION
  Report Type: 
  Country: None (occurrence: None)
  Receive Date: 20070404
  Receipt Date: 20070328
  Transmission Date: 20071010
  Serious: Yes (Hospitalization)
  Sender: FDA-Public Use
  Company Number: DE-MERCK-0703DEU00113

PATIENT
  Sex: Female

DRUGS (1)
  1. COZAAR [Suspect]
     Route: 048
     Dates: end: 20070326

REACTIONS (2)
  - BONE MARROW DISORDER [None]
  - THROMBOCYTOPENIA [None]
